FAERS Safety Report 8306599-7 (Version None)
Quarter: 2012Q1

REPORT INFORMATION
  Report Type: 
  Country: None (occurrence: None)
  Receive Date: 20120327
  Receipt Date: 20091123
  Transmission Date: 20120608
  Serious: Yes (Hospitalization, Other)
  Sender: FDA-Public Use
  Company Number: PHEH2009US16469

PATIENT
  Age: 55 Year
  Sex: Female
  Weight: 68 kg

DRUGS (4)
  1. GLEEVEC [Suspect]
     Indication: CHRONIC MYELOID LEUKAEMIA
     Dosage: 400 MG,QD, ORAL
     Route: 048
     Dates: start: 20090122, end: 20090715
  2. TRAMADOL HCL [Concomitant]
  3. ZOLOFT [Concomitant]
  4. DILTIAZEM [Concomitant]

REACTIONS (6)
  - ALANINE AMINOTRANSFERASE INCREASED [None]
  - BLOOD ALKALINE PHOSPHATASE INCREASED [None]
  - HEPATITIS [None]
  - ASPARTATE AMINOTRANSFERASE INCREASED [None]
  - RASH MACULAR [None]
  - AMMONIA INCREASED [None]
